FAERS Safety Report 19741884 (Version 1)
Quarter: 2021Q3

REPORT INFORMATION
  Report Type: Spontaneous
  Country: US (occurrence: US)
  Receive Date: 20210824
  Receipt Date: 20210824
  Transmission Date: 20211014
  Serious: Yes (Other)
  Sender: FDA-Public Use
  Company Number: US-ASTRAZENECA-2021A692784

PATIENT
  Age: 35 Year
  Sex: Female

DRUGS (1)
  1. QUETIAPINE. [Suspect]
     Active Substance: QUETIAPINE
     Dosage: 36.0G UNKNOWN
     Route: 048

REACTIONS (3)
  - Intentional overdose [Unknown]
  - Circulatory collapse [Recovering/Resolving]
  - Status epilepticus [Recovering/Resolving]
